FAERS Safety Report 10242806 (Version 1)
Quarter: 2014Q2

REPORT INFORMATION
  Report Type: Spontaneous
  Country: CA (occurrence: CA)
  Receive Date: 20140618
  Receipt Date: 20140618
  Transmission Date: 20141212
  Serious: Yes (Other)
  Sender: FDA-Public Use
  Company Number: CA-UCBSA-2014001913

PATIENT
  Age: 46 Year
  Sex: Female

DRUGS (2)
  1. VIMPAT [Suspect]
     Dosage: UNKNOWN
     Route: 048
  2. VIMPAT [Suspect]
     Dosage: UNK

REACTIONS (5)
  - Electrocardiogram PR prolongation [Unknown]
  - Cerebrovascular accident [Unknown]
  - Status epilepticus [Unknown]
  - Stress cardiomyopathy [Unknown]
  - Treatment noncompliance [Unknown]
